FAERS Safety Report 25087723 (Version 1)
Quarter: 2025Q1

REPORT INFORMATION
  Report Type: Report from Study
  Country: CA (occurrence: CA)
  Receive Date: 20250318
  Receipt Date: 20250318
  Transmission Date: 20250408
  Serious: Yes (Other)
  Sender: TAKEDA
  Company Number: CA-TAKEDA-2025TUS026897

PATIENT
  Sex: Female

DRUGS (14)
  1. VEDOLIZUMAB [Suspect]
     Active Substance: VEDOLIZUMAB
     Indication: Colitis ulcerative
  2. PANTOPRAZOLE SODIUM [Suspect]
     Active Substance: PANTOPRAZOLE SODIUM
     Indication: Product used for unknown indication
  3. ROSUVASTATIN [Concomitant]
     Active Substance: ROSUVASTATIN
  4. TELMISARTAN [Concomitant]
     Active Substance: TELMISARTAN
  5. SYNTHROID [Concomitant]
     Active Substance: LEVOTHYROXINE SODIUM
  6. TOVIAZ [Concomitant]
     Active Substance: FESOTERODINE FUMARATE
  7. PURINETHOL [Concomitant]
     Active Substance: MERCAPTOPURINE
  8. VITAMIN D NOS [Concomitant]
     Active Substance: CHOLECALCIFEROL\ERGOCALCIFEROL
  9. AMLODIPINE [Concomitant]
     Active Substance: AMLODIPINE BESYLATE
  10. INDAPAMIDE [Concomitant]
     Active Substance: INDAPAMIDE
  11. GLICLAZIDE [Concomitant]
     Active Substance: GLICLAZIDE
  12. METFORMIN [Concomitant]
     Active Substance: METFORMIN HYDROCHLORIDE
  13. AMITRIPTYLINE [Concomitant]
     Active Substance: AMITRIPTYLINE
  14. FESOTERODINE FUMARATE [Concomitant]
     Active Substance: FESOTERODINE FUMARATE

REACTIONS (1)
  - Type 2 diabetes mellitus [Not Recovered/Not Resolved]
